FAERS Safety Report 9889768 (Version 2)
Quarter: 2014Q1

REPORT INFORMATION
  Report Type: Spontaneous
  Country: US (occurrence: US)
  Receive Date: 20140211
  Receipt Date: 20140221
  Transmission Date: 20141002
  Serious: Yes (Other)
  Sender: FDA-Public Use
  Company Number: US-DRREDDYS-USA/USA/14/0037953

PATIENT
  Age: 22 Year
  Sex: Female
  Weight: 58.57 kg

DRUGS (3)
  1. ZENATANE [Suspect]
     Indication: ACNE
     Route: 048
     Dates: start: 20131213, end: 20140117
  2. ZENATANE [Suspect]
     Route: 048
     Dates: end: 20140117
  3. ORTHO-TRICYCLEN [Concomitant]
     Indication: PRODUCT USED FOR UNKNOWN INDICATION
     Route: 065

REACTIONS (2)
  - Infectious mononucleosis [Unknown]
  - Liver function test abnormal [Recovering/Resolving]
